FAERS Safety Report 8202946-5 (Version None)
Quarter: 2012Q1

REPORT INFORMATION
  Report Type: 
  Country: None (occurrence: None)
  Receive Date: 20120312
  Receipt Date: 20120301
  Transmission Date: 20120608
  Serious: Yes (Congenital Anomaly, Other)
  Sender: FDA-Public Use
  Company Number: FI-FRI-1000028521

PATIENT
  Age: 6 Month

DRUGS (1)
  1. CITALOPRAM [Suspect]
     Dosage: 10 MG
     Route: 063

REACTIONS (2)
  - EXPOSURE DURING BREAST FEEDING [None]
  - HYDROCEPHALUS [None]
